FAERS Safety Report 7036371-X (Version None)
Quarter: 2010Q4

REPORT INFORMATION
  Report Type: 
  Country: None (occurrence: None)
  Receive Date: 20101008
  Receipt Date: 20101007
  Transmission Date: 20110411
  Serious: Yes (Death, Hospitalization)
  Sender: FDA-Public Use
  Company Number: IT-MERCK-1009ITA00052

PATIENT
  Age: 84 Year
  Sex: Male

DRUGS (4)
  1. MODURETIC 5-50 [Suspect]
     Indication: HYPERTENSION
     Route: 048
     Dates: start: 20090101, end: 20100320
  2. AMIODARONE HCL [Concomitant]
     Route: 065
  3. GARDENAL [Concomitant]
     Route: 048
  4. COUMADIN [Concomitant]
     Route: 065

REACTIONS (3)
  - HYPOCALCAEMIA [None]
  - HYPONATRAEMIA [None]
  - SEPSIS [None]
